FAERS Safety Report 6407539-8 (Version None)
Quarter: 2009Q4

REPORT INFORMATION
  Report Type: 
  Country: None (occurrence: None)
  Receive Date: 20091020
  Receipt Date: 20091012
  Transmission Date: 20100525
  Serious: Yes (Death, Other)
  Sender: FDA-Public Use
  Company Number: FR-TEVA-212347ISR

PATIENT
  Age: 82 Year

DRUGS (1)
  1. GEMCITABINE [Suspect]
     Indication: T-CELL LYMPHOMA
     Route: 042

REACTIONS (1)
  - ATRIAL FIBRILLATION [None]
